FAERS Safety Report 6557997-3 (Version None)
Quarter: 2010Q1

REPORT INFORMATION
  Report Type: 
  Country: None (occurrence: None)
  Receive Date: 20100129
  Receipt Date: 20100120
  Transmission Date: 20100710
  Serious: Yes (Hospitalization)
  Sender: FDA-Public Use
  Company Number: US-ROCHE-673883

PATIENT
  Age: 34 Year
  Sex: Female
  Weight: 84 kg

DRUGS (14)
  1. BEVACIZUMAB [Suspect]
     Indication: BREAST CANCER METASTATIC
     Route: 065
     Dates: start: 20090707
  2. BEVACIZUMAB [Suspect]
     Dosage: LAST DOSE PRIOR TO SAE: 16 NOV 2009, COURSE NO .7, TOTAL DOSE IN THIS COURSE 1250 MG
     Route: 065
     Dates: start: 20091116
  3. PACLITAXEL [Suspect]
     Indication: BREAST CANCER METASTATIC
     Dosage: DAY 1 AND 8 EVERY 21 DAY CYCLE
     Route: 042
     Dates: start: 20090707
  4. PACLITAXEL [Suspect]
     Dosage: LAST DOSE PRIOR TO SAE: 23 NOV 2009. COURSE 7, TOTAL DOSE IN THIS COURSE 4000 MG
     Route: 042
     Dates: start: 20091116
  5. GEMCITABINE [Suspect]
     Indication: BREAST CANCER METASTATIC
     Dosage: FREQ: DAY 1 AND DAY 8 OF 21 DAY CYCLE.
     Route: 042
     Dates: start: 20090707
  6. GEMCITABINE [Suspect]
     Dosage: COURSE 7, LAST DOSE PRIRO TO SAE ON 23 NOV 2009, TOTAL DOSE IN THIS COURSE 500 MG
     Route: 042
     Dates: start: 20091116
  7. ATIVAN [Concomitant]
  8. COMPAZINE [Concomitant]
  9. DILAUDID [Concomitant]
  10. IMITREX [Concomitant]
  11. LYRICA [Concomitant]
  12. OXYCONTIN [Concomitant]
  13. PERCOCET [Concomitant]
  14. TRAZODONE [Concomitant]
     Dosage: DRUG NAME: TRAZADONE

REACTIONS (5)
  - BLOOD AMYLASE INCREASED [None]
  - BONE PAIN [None]
  - DIARRHOEA [None]
  - LIPASE INCREASED [None]
  - NAUSEA [None]
